FAERS Safety Report 12346528 (Version 2)
Quarter: 2016Q2

REPORT INFORMATION
  Report Type: Spontaneous
  Country: US (occurrence: US)
  Receive Date: 20160509
  Receipt Date: 20160525
  Transmission Date: 20160815
  Serious: Yes (Other)
  Sender: FDA-Public Use
  Company Number: US-009507513-1604USA017077

PATIENT
  Age: 65 Year
  Sex: Female
  Weight: 70.3 kg

DRUGS (1)
  1. JANUVIA [Suspect]
     Active Substance: SITAGLIPTIN PHOSPHATE
     Indication: TYPE 2 DIABETES MELLITUS
     Dosage: STRENGTH 100 (UNIT NOT PROVIDED), 1 DOSE FORM (DF), QD
     Route: 048
     Dates: start: 20140519, end: 20150610

REACTIONS (2)
  - Oedema [Recovered/Resolved]
  - Sodium retention [Recovered/Resolved]

NARRATIVE: CASE EVENT DATE: 20150610
